FAERS Safety Report 7405551-3 (Version None)
Quarter: 2011Q2

REPORT INFORMATION
  Report Type: 
  Country: None (occurrence: None)
  Receive Date: 20110411
  Receipt Date: 20110329
  Transmission Date: 20111010
  Serious: Yes (Hospitalization, Other)
  Sender: FDA-Public Use
  Company Number: US-AMGEN-USASP2011014995

PATIENT
  Age: 9 Year
  Sex: Female
  Weight: 22 kg

DRUGS (12)
  1. EPOGEN [Suspect]
     Dosage: 10000 IU, 3 TIMES/WK
     Route: 058
     Dates: start: 20100101
  2. PROCRIT [Suspect]
     Indication: PRODUCT USED FOR UNKNOWN INDICATION
     Dosage: 1000 A?G, 3 TIMES/WK
     Dates: start: 20080101
  3. IRON [Concomitant]
     Dosage: UNK
  4. EPOGEN [Suspect]
     Indication: ANAEMIA
     Dosage: 3000 IU, 3 TIMES/WK
     Route: 042
     Dates: end: 20110301
  5. VALGANCICLOVIR [Concomitant]
     Indication: ANAEMIA
  6. SYMBICORT [Concomitant]
     Dosage: UNK
  7. ALBUTEROL [Concomitant]
     Dosage: UNK
  8. PERIACTIN [Concomitant]
     Dosage: UNK
  9. PHOSLO [Concomitant]
     Dosage: UNK
  10. PULMOZYME [Concomitant]
     Dosage: UNK
  11. CELLCEPT [Concomitant]
     Dosage: UNK
  12. ATENOLOL [Concomitant]
     Dosage: UNK

REACTIONS (9)
  - ANTI-ERYTHROPOIETIN ANTIBODY [None]
  - HOSPITALISATION [None]
  - HLA MARKER STUDY POSITIVE [None]
  - WHITE BLOOD CELL COUNT DECREASED [None]
  - HAEMOGLOBIN DECREASED [None]
  - MEAN CELL VOLUME INCREASED [None]
  - MACROCYTOSIS [None]
  - TRANSFUSION [None]
  - RETICULOCYTE COUNT DECREASED [None]
